FAERS Safety Report 24374404 (Version 19)
Quarter: 2025Q4

REPORT INFORMATION
  Report Type: Spontaneous
  Country: US (occurrence: US)
  Receive Date: 20240927
  Receipt Date: 20251229
  Transmission Date: 20260117
  Serious: Yes (Hospitalization, Other)
  Sender: PFIZER
  Company Number: US-PFIZER INC-PV202400095132

PATIENT
  Age: 56 Year
  Sex: Male
  Weight: 81.1 kg

DRUGS (6)
  1. ADCETRIS [Suspect]
     Active Substance: BRENTUXIMAB VEDOTIN
     Indication: Follicular lymphoma
     Dosage: 97 MG, EVERY 2 WEEKS/EVERY 14 DAYS/97 MG (2 VIALS) EVERY 14 DAYS
     Route: 042
  2. ADCETRIS [Suspect]
     Active Substance: BRENTUXIMAB VEDOTIN
     Indication: Hodgkin^s disease
     Dosage: 140 MG EVERY 21 DAYS
     Dates: end: 20250516
  3. ADCETRIS [Suspect]
     Active Substance: BRENTUXIMAB VEDOTIN
     Dosage: 138 MG EVERY 21 DAYS
  4. ADCETRIS [Suspect]
     Active Substance: BRENTUXIMAB VEDOTIN
     Dosage: 133 MG
  5. ADCETRIS [Suspect]
     Active Substance: BRENTUXIMAB VEDOTIN
     Dosage: 123 MG EVERY 21 DAYS
  6. OPDIVO [Concomitant]
     Active Substance: NIVOLUMAB
     Dosage: EVERY 3 WEEKS

REACTIONS (8)
  - Hodgkin^s disease [Unknown]
  - Follicular lymphoma [Unknown]
  - Malignant neoplasm progression [Unknown]
  - Illness [Unknown]
  - Off label use [Unknown]
  - Product use issue [Unknown]
  - Weight fluctuation [Not Recovered/Not Resolved]
  - Weight decreased [Unknown]
